FAERS Safety Report 5371707-7 (Version None)
Quarter: 2007Q2

REPORT INFORMATION
  Report Type: 
  Country: None (occurrence: None)
  Receive Date: 20070627
  Receipt Date: 20070618
  Transmission Date: 20071010
  Serious: Yes (Disabling)
  Sender: FDA-Public Use
  Company Number: FR-BRISTOL-MYERS SQUIBB COMPANY-13819321

PATIENT
  Age: 39 Year
  Sex: Female

DRUGS (11)
  1. BCNU PWDR FOR INJ 100 MG [Suspect]
     Indication: HODGKIN'S DISEASE STAGE II
     Route: 042
     Dates: start: 20030621, end: 20030621
  2. ENDOXAN [Suspect]
     Indication: HODGKIN'S DISEASE STAGE II
     Route: 042
     Dates: start: 20060303, end: 20060320
  3. DOXORUBICIN HCL [Suspect]
     Indication: HODGKIN'S DISEASE
     Route: 042
     Dates: start: 20020921, end: 20030320
  4. BUSULFAN [Suspect]
     Indication: HODGKIN'S DISEASE STAGE II
     Route: 042
     Dates: start: 20030822, end: 20030824
  5. MELPHALAN [Suspect]
     Indication: HODGKIN'S DISEASE STAGE II
     Route: 042
     Dates: start: 20030621, end: 20030822
  6. BLEOMYCINE ROGER BELLON [Suspect]
     Indication: HODGKIN'S DISEASE STAGE II
     Route: 042
     Dates: start: 20020921, end: 20030320
  7. PULMICORT [Concomitant]
  8. KETOPROFEN [Concomitant]
  9. NEXIUM [Concomitant]
  10. DAFALGAN [Concomitant]
  11. LORAZEPAM [Concomitant]

REACTIONS (1)
  - PLEURAL FIBROSIS [None]
